FAERS Safety Report 20550386 (Version 1)
Quarter: 2022Q1

REPORT INFORMATION
  Report Type: Spontaneous
  Country: US (occurrence: US)
  Receive Date: 20220304
  Receipt Date: 20220304
  Transmission Date: 20220423
  Serious: Yes (Hospitalization, Other)
  Sender: FDA-Public Use
  Company Number: US-PURDUE-USA-2020-0283145

PATIENT
  Sex: Male

DRUGS (1)
  1. OXYCONTIN [Suspect]
     Active Substance: OXYCODONE HYDROCHLORIDE
     Indication: Back pain
     Dosage: 80 MG, DAILY
     Route: 048

REACTIONS (6)
  - Drug dependence [Unknown]
  - Insomnia [Unknown]
  - Hallucination, visual [Unknown]
  - Drug withdrawal syndrome [Unknown]
  - Sexual dysfunction [Unknown]
  - Psychotic disorder [Unknown]
